FAERS Safety Report 16477809 (Version 2)
Quarter: 2019Q4

REPORT INFORMATION
  Report Type: Report from Study
  Country: GB (occurrence: GB)
  Receive Date: 20190626
  Receipt Date: 20191003
  Transmission Date: 20200122
  Serious: Yes (Death, Hospitalization)
  Sender: FDA-Public Use
  Company Number: GB-ROCHE-2105561

PATIENT
  Age: 79 Year
  Sex: Male

DRUGS (6)
  1. ALTEPLASE. [Suspect]
     Active Substance: ALTEPLASE
     Indication: ISCHAEMIC STROKE
     Dosage: ONCE IN ONE
     Route: 042
     Dates: start: 20180403
  2. ATENOLOL. [Concomitant]
     Active Substance: ATENOLOL
     Route: 048
  3. ATORVASTATIN [Concomitant]
     Active Substance: ATORVASTATIN
     Route: 048
  4. NIFEDIPINE. [Concomitant]
     Active Substance: NIFEDIPINE
     Indication: PRODUCT USED FOR UNKNOWN INDICATION
     Route: 048
     Dates: start: 20180305
  5. PERINDOPRIL [Concomitant]
     Active Substance: PERINDOPRIL
     Route: 048
  6. TAMSULOSIN [Concomitant]
     Active Substance: TAMSULOSIN
     Route: 048

REACTIONS (5)
  - Cardiac arrest [Fatal]
  - Myocardial ischaemia [Fatal]
  - Post procedural myocardial infarction [Recovered/Resolved with Sequelae]
  - Cerebrovascular accident [Fatal]
  - Cardiac failure congestive [Fatal]

NARRATIVE: CASE EVENT DATE: 20180403
